FAERS Safety Report 11044451 (Version 1)
Quarter: 2015Q2

REPORT INFORMATION
  Report Type: Report from Study
  Country: US (occurrence: US)
  Receive Date: 20150417
  Receipt Date: 20150417
  Transmission Date: 20150821
  Serious: Yes (Hospitalization, Other)
  Sender: FDA-Public Use
  Company Number: US-ROCHE-1015573

PATIENT
  Age: 68 Year
  Sex: Female
  Weight: 51.5 kg

DRUGS (22)
  1. SINGULAIR [Concomitant]
     Active Substance: MONTELUKAST SODIUM
  2. RITUXIMAB [Suspect]
     Active Substance: RITUXIMAB
     Route: 065
     Dates: start: 20110513
  3. SIROLIMUS. [Concomitant]
     Active Substance: SIROLIMUS
  4. PENVIR [Concomitant]
  5. LOPRESSOR [Concomitant]
     Active Substance: METOPROLOL TARTRATE
  6. K-DUR [Concomitant]
     Active Substance: POTASSIUM CHLORIDE
  7. REMERON [Concomitant]
     Active Substance: MIRTAZAPINE
  8. ALLEGRA [Concomitant]
     Active Substance: FEXOFENADINE HYDROCHLORIDE
  9. RESTASIS [Concomitant]
     Active Substance: CYCLOSPORINE
  10. TRICOR [Concomitant]
     Active Substance: FENOFIBRATE
  11. MYCOPHENOLATE MOFETIL. [Concomitant]
     Active Substance: MYCOPHENOLATE MOFETIL
     Dosage: DOSE TAPERED
     Route: 065
  12. PROGRAF [Concomitant]
     Active Substance: TACROLIMUS\TACROLIMUS ANHYDROUS
  13. PENTAM [Concomitant]
     Active Substance: PENTAMIDINE ISETHIONATE
  14. VFEND [Concomitant]
     Active Substance: VORICONAZOLE
  15. RITUXIMAB [Suspect]
     Active Substance: RITUXIMAB
     Indication: CHRONIC GRAFT VERSUS HOST DISEASE
     Route: 065
     Dates: start: 20110513
  16. REFRESH PLUS [Concomitant]
     Active Substance: CARBOXYMETHYLCELLULOSE SODIUM
  17. ACYCLOVIR. [Concomitant]
     Active Substance: ACYCLOVIR
  18. BIOTENE MOUTHWASH [Concomitant]
  19. ERTAPENEM [Concomitant]
     Active Substance: ERTAPENEM
  20. BIAXIN (UNK INGREDIENTS) [Concomitant]
  21. RESTORIL [Concomitant]
     Active Substance: TEMAZEPAM
  22. DAPTOMYCIN. [Concomitant]
     Active Substance: DAPTOMYCIN

REACTIONS (7)
  - Pyrexia [Unknown]
  - Chills [Unknown]
  - Diarrhoea [Unknown]
  - Pneumonia [Unknown]
  - Hip fracture [Unknown]
  - Odynophagia [Unknown]
  - Vomiting [Unknown]

NARRATIVE: CASE EVENT DATE: 20110607
